FAERS Safety Report 20662099 (Version 1)
Quarter: 2022Q2

REPORT INFORMATION
  Report Type: Spontaneous
  Country: GB (occurrence: GB)
  Receive Date: 20220401
  Receipt Date: 20220401
  Transmission Date: 20220720
  Serious: Yes (Congenital Anomaly)
  Sender: FDA-Public Use
  Company Number: GB-ABBVIE-22K-167-4341505-00

PATIENT
  Sex: Male

DRUGS (1)
  1. VALPROATE SODIUM [Suspect]
     Active Substance: VALPROATE SODIUM
     Indication: Maternal exposure timing unspecified
     Route: 064

REACTIONS (5)
  - Fine motor skill dysfunction [Unknown]
  - Dysgraphia [Unknown]
  - Visual impairment [Unknown]
  - Speech disorder [Unknown]
  - Foetal exposure during pregnancy [Unknown]
